FAERS Safety Report 6174302-5 (Version None)
Quarter: 2009Q2

REPORT INFORMATION
  Report Type: 
  Country: None (occurrence: None)
  Receive Date: 20090430
  Receipt Date: 20080507
  Transmission Date: 20091009
  Serious: Yes (Other)
  Sender: FDA-Public Use
  Company Number: US-ASTRAZENECA-2008UW09403

PATIENT
  Age: 69 Year
  Sex: Male

DRUGS (1)
  1. NEXIUM [Suspect]
     Route: 048

REACTIONS (6)
  - ARTHRALGIA [None]
  - BONE PAIN [None]
  - FIBROMYALGIA [None]
  - MYALGIA [None]
  - PAIN [None]
  - PAIN IN EXTREMITY [None]
